FAERS Safety Report 10257979 (Version 1)
Quarter: 2014Q2

REPORT INFORMATION
  Report Type: Spontaneous
  Country: US (occurrence: GB)
  Receive Date: 20140625
  Receipt Date: 20140625
  Transmission Date: 20141212
  Serious: Yes (Other)
  Sender: FDA-Public Use
  Company Number: GB-FRI-1000068464

PATIENT
  Age: 51 Year
  Sex: Female
  Weight: 46 kg

DRUGS (1)
  1. LINACLOTIDE [Suspect]
     Dosage: 290 MCG
     Route: 048
     Dates: start: 20130530

REACTIONS (2)
  - Hypokalaemia [Recovering/Resolving]
  - Electrocardiogram ST segment depression [Unknown]
